FAERS Safety Report 9098638 (Version 1)
Quarter: 2013Q1

REPORT INFORMATION
  Report Type: Spontaneous
  Country: US (occurrence: US)
  Receive Date: 20130213
  Receipt Date: 20130213
  Transmission Date: 20140127
  Serious: Yes (Death, Other)
  Sender: FDA-Public Use
  Company Number: US-ELI_LILLY_AND_COMPANY-US201302001689

PATIENT
  Age: 95 Year
  Sex: Male

DRUGS (6)
  1. FLUOXETINE HYDROCHLORIDE [Suspect]
  2. BUSPIRONE [Concomitant]
  3. METHYLPHENIDATE [Concomitant]
  4. NEFAZODONE [Concomitant]
  5. ACETAMINOPHEN [Concomitant]
  6. HYOSCYAMINE [Concomitant]

REACTIONS (2)
  - Cardio-respiratory arrest [Fatal]
  - Completed suicide [Fatal]
